FAERS Safety Report 9346506 (Version 1)
Quarter: 2013Q2

REPORT INFORMATION
  Report Type: Other
  Country: GB (occurrence: GB)
  Receive Date: 20130613
  Receipt Date: 20130613
  Transmission Date: 20140414
  Serious: Yes (Other)
  Sender: FDA-Public Use
  Company Number: GB-WATSON-2013-10070

PATIENT
  Age: 23 Year
  Sex: Male

DRUGS (2)
  1. LEVETIRACETAM (UNKNOWN) [Suspect]
     Indication: PRODUCT USED FOR UNKNOWN INDICATION
     Dosage: DAILY DOSE : 2250 (UNITS NOT SPECIFIED)
     Route: 065
  2. SODIUM VALPROATE [Concomitant]
     Indication: PRODUCT USED FOR UNKNOWN INDICATION
     Dosage: DAILY DOSE : 1400 (UNITS NOT SPECIFIED)
     Route: 065

REACTIONS (2)
  - Epilepsy [Unknown]
  - Drug ineffective [Unknown]
